FAERS Safety Report 5571787-X (Version None)
Quarter: 2007Q4

REPORT INFORMATION
  Report Type: 
  Country: None (occurrence: None)
  Receive Date: 20071221
  Receipt Date: 20071218
  Transmission Date: 20080405
  Serious: Yes (Life-Threatening)
  Sender: FDA-Public Use
  Company Number: B0500210A

PATIENT
  Age: 37 Year
  Sex: Female

DRUGS (1)
  1. PAXIL [Suspect]
     Indication: LISTLESS
     Dosage: 10MG PER DAY
     Route: 048
     Dates: start: 20051214, end: 20060502

REACTIONS (1)
  - HOMICIDAL IDEATION [None]
